FAERS Safety Report 11629899 (Version 1)
Quarter: 2015Q4

REPORT INFORMATION
  Report Type: Spontaneous
  Country: FR (occurrence: FR)
  Receive Date: 20151014
  Receipt Date: 20151014
  Transmission Date: 20160304
  Serious: Yes (Death)
  Sender: FDA-Public Use
  Company Number: FR-SA-2015SA160845

PATIENT
  Age: 83 Year
  Sex: Male

DRUGS (7)
  1. LASILIX SPECIAL [Suspect]
     Active Substance: FUROSEMIDE
     Route: 048
     Dates: end: 20150831
  2. CRESTOR [Suspect]
     Active Substance: ROSUVASTATIN CALCIUM
     Route: 048
     Dates: end: 20150831
  3. HEMIGOXINE NATIVELLE [Suspect]
     Active Substance: DIGOXIN
     Dosage: 5 TIMES PER WEEK
     Route: 048
     Dates: end: 20150831
  4. XARELTO [Suspect]
     Active Substance: RIVAROXABAN
     Route: 048
     Dates: end: 20150831
  5. INSPRA [Suspect]
     Active Substance: EPLERENONE
     Route: 048
     Dates: end: 20150831
  6. TEMERIT [Suspect]
     Active Substance: NEBIVOLOL
     Route: 048
     Dates: end: 20150831
  7. TAREG [Suspect]
     Active Substance: VALSARTAN
     Route: 048
     Dates: end: 20150831

REACTIONS (1)
  - Ischaemic stroke [Fatal]

NARRATIVE: CASE EVENT DATE: 20150831
